FAERS Safety Report 23225402 (Version 1)
Quarter: 2023Q4

REPORT INFORMATION
  Report Type: Spontaneous
  Country: US (occurrence: US)
  Receive Date: 20231124
  Receipt Date: 20231124
  Transmission Date: 20240110
  Serious: No
  Sender: FDA-Public Use
  Company Number: US-LEO Pharma-365332

PATIENT
  Age: 26 Year
  Sex: Female

DRUGS (1)
  1. ADBRY [Suspect]
     Active Substance: TRALOKINUMAB-LDRM
     Indication: Dermatitis atopic
     Dosage: FREQUENCY: INJECT 4 SYRINGES UNDER THE SKIN ON DAY 1,?THEN START MAINTENANCE DOSING AS DIRECTED ON D
     Route: 058
     Dates: start: 202311

REACTIONS (1)
  - Periorbital swelling [Unknown]
